FAERS Safety Report 6074146-9 (Version None)
Quarter: 2009Q1

REPORT INFORMATION
  Report Type: 
  Country: None (occurrence: None)
  Receive Date: 20090211
  Receipt Date: 20090204
  Transmission Date: 20090719
  Serious: Yes (Hospitalization, Other)
  Sender: FDA-Public Use
  Company Number: HR-ABBOTT-09P-216-0499392-00

PATIENT
  Age: 58 Year
  Sex: Female
  Weight: 44 kg

DRUGS (5)
  1. ZEMPLAR [Suspect]
     Indication: HYPERPARATHYROIDISM
     Route: 042
     Dates: start: 20071122
  2. CALCIUM CARBONATE [Concomitant]
     Indication: HYPERPHOSPHATAEMIA
     Dosage: 3X1 GRAM
     Dates: end: 20080313
  3. FLUVASTATIN [Concomitant]
     Indication: HYPERLIPIDAEMIA
     Route: 048
  4. EPOETIN BETA [Concomitant]
     Indication: ANAEMIA
     Dates: start: 20071011
  5. SEVELAMER [Concomitant]
     Indication: HYPERPHOSPHATAEMIA
     Dates: end: 20080313

REACTIONS (2)
  - DYSPNOEA [None]
  - PERICARDIAL EFFUSION [None]
